FAERS Safety Report 14113239 (Version 1)
Quarter: 2017Q4

REPORT INFORMATION
  Report Type: Spontaneous
  Country: US (occurrence: None)
  Receive Date: 20171021
  Receipt Date: 20171021
  Transmission Date: 20180321
  Serious: Yes (Hospitalization)
  Sender: FDA-Public Use
  Company Number: None

PATIENT
  Age: 70 Year
  Sex: Male
  Weight: 132 kg

DRUGS (4)
  1. LEUPROLIDE ACETATE. [Suspect]
     Active Substance: LEUPROLIDE ACETATE
     Dates: end: 20171006
  2. ASPIRIN. [Concomitant]
     Active Substance: ASPIRIN
  3. RIVAROXABAN [Concomitant]
     Active Substance: RIVAROXABAN
  4. CASODEX [Suspect]
     Active Substance: BICALUTAMIDE
     Dates: end: 20160609

REACTIONS (2)
  - Rectal haemorrhage [None]
  - Radiation proctitis [None]

NARRATIVE: CASE EVENT DATE: 20171016
